FAERS Safety Report 6190040-7 (Version None)
Quarter: 2009Q2

REPORT INFORMATION
  Report Type: 
  Country: None (occurrence: None)
  Receive Date: 20090512
  Receipt Date: 20090512
  Transmission Date: 20091009
  Serious: Yes (Hospitalization)
  Sender: FDA-Public Use
  Company Number: None

PATIENT
  Age: 78 Year
  Sex: Female
  Weight: 54.4 kg

DRUGS (10)
  1. PLAVIX [Suspect]
     Indication: STENT PLACEMENT
     Dosage: 75 MG -ONE TABLET- DAILY PO
     Route: 048
     Dates: start: 20081009, end: 20081010
  2. ASPIRIN [Concomitant]
  3. DESYREL [Concomitant]
  4. DIOVAN HCT [Concomitant]
  5. ALLEGRA [Concomitant]
  6. CARDIZEM CD [Concomitant]
  7. TOPROL-XL [Concomitant]
  8. CELEXA [Concomitant]
  9. PREDNISONE [Concomitant]
  10. TICLID [Concomitant]

REACTIONS (2)
  - LARYNGEAL OEDEMA [None]
  - SWELLING FACE [None]
